FAERS Safety Report 10304842 (Version 2)
Quarter: 2014Q3

REPORT INFORMATION
  Report Type: Spontaneous
  Country: NL (occurrence: NL)
  Receive Date: 20140715
  Receipt Date: 20140715
  Transmission Date: 20150326
  Serious: Yes (Disabling)
  Sender: FDA-Public Use
  Company Number: PHHY2014NL001611

PATIENT

DRUGS (4)
  1. CAMCOLIT [Concomitant]
     Dosage: 1400 MG, UNK
  2. TEGRETOL [Suspect]
     Active Substance: CARBAMAZEPINE
     Dosage: 800 MG, UNK
     Route: 048
     Dates: start: 20130810
  3. TEGRETOL [Suspect]
     Active Substance: CARBAMAZEPINE
     Dosage: 7 MG/L, UNK
     Dates: end: 20140201
  4. CAMCOLIT [Concomitant]
     Dosage: 400 MG, UNK

REACTIONS (6)
  - Hypoaesthesia [Recovered/Resolved with Sequelae]
  - Muscular weakness [Recovering/Resolving]
  - Coordination abnormal [Recovering/Resolving]
  - Eyelid function disorder [Recovered/Resolved]
  - Dry eye [Recovered/Resolved]
  - Dysuria [Recovered/Resolved]

NARRATIVE: CASE EVENT DATE: 201403
